FAERS Safety Report 5333554-1 (Version None)
Quarter: 2007Q2

REPORT INFORMATION
  Report Type: 
  Country: None (occurrence: None)
  Receive Date: 20070524
  Receipt Date: 20070516
  Transmission Date: 20071010
  Serious: Yes (Hospitalization)
  Sender: FDA-Public Use
  Company Number: HQWYE074018APR05

PATIENT
  Sex: Female
  Weight: 51 kg

DRUGS (6)
  1. RAPAMUNE [Suspect]
     Indication: PROPHYLAXIS AGAINST TRANSPLANT REJECTION
     Dates: start: 20050325
  2. ADALAT [Concomitant]
     Route: 048
     Dates: start: 20050323
  3. CYCLOSPORINE [Concomitant]
     Route: 048
     Dates: start: 20050322, end: 20050429
  4. PREDNISONE TAB [Suspect]
  5. BACTRIM [Concomitant]
     Route: 048
     Dates: start: 20050325
  6. ENALAPRIL [Concomitant]
     Route: 048
     Dates: start: 20050329

REACTIONS (1)
  - EROSIVE OESOPHAGITIS [None]
